FAERS Safety Report 16625385 (Version 1)
Quarter: 2019Q3

REPORT INFORMATION
  Report Type: Spontaneous
  Country: US (occurrence: US)
  Receive Date: 20190612
  Receipt Date: 20190612
  Transmission Date: 20191004
  Serious: Yes (Hospitalization)
  Sender: FDA-Public Use
  Company Number: None

PATIENT
  Sex: Female

DRUGS (15)
  1. FLUMOROMETHOL SUS [Concomitant]
  2. LOSARTAN POT TAB [Concomitant]
  3. LYRICA CAP [Concomitant]
  4. HYDROXYCHLOR TAB [Concomitant]
  5. GABAPENTIN CAP [Concomitant]
  6. FOLIC ACID TAB [Concomitant]
  7. VITAMIN D CAP [Concomitant]
  8. AMOXICILLIN CAP [Concomitant]
  9. ESTRADIOL DIS [Concomitant]
  10. FISH OIL CAP [Concomitant]
  11. FLUVIRIN INJ [Concomitant]
  12. METHOTREXATE TAB [Concomitant]
     Active Substance: METHOTREXATE
  13. DICLOFENAC SOL [Concomitant]
  14. ORENCIA [Suspect]
     Active Substance: ABATACEPT
     Indication: RHEUMATOID ARTHRITIS
     Route: 058
     Dates: start: 20171006
  15. FIBER TAB [Concomitant]

REACTIONS (3)
  - Knee operation [None]
  - Therapy cessation [None]
  - Rheumatoid arthritis [None]
